FAERS Safety Report 6095028-2 (Version None)
Quarter: 2009Q1

REPORT INFORMATION
  Report Type: 
  Country: None (occurrence: None)
  Receive Date: 20090227
  Receipt Date: 20080305
  Transmission Date: 20090719
  Serious: No
  Sender: FDA-Public Use
  Company Number: A0693922A

PATIENT
  Age: 51 Year
  Sex: Female

DRUGS (7)
  1. LAMICTAL [Suspect]
     Indication: BIPOLAR DISORDER
     Dosage: 25MG ALTERNATE DAYS
     Route: 048
     Dates: start: 20071023, end: 20071108
  2. TEGRETOL [Concomitant]
     Indication: BIPOLAR DISORDER
     Dosage: 500MG AT NIGHT
     Dates: start: 20070918
  3. AMITRIPTYLINE [Concomitant]
     Indication: INSOMNIA
     Dosage: 25MG AT NIGHT
     Dates: start: 20070918
  4. LOVASTATIN [Concomitant]
  5. ALEVE [Concomitant]
  6. CALCIUM/MAGNESIUM [Concomitant]
  7. VITAMIN C + VITAMIN E + B COMPLEX [Concomitant]

REACTIONS (3)
  - ARTHRALGIA [None]
  - ARTHRITIS [None]
  - MUSCULAR WEAKNESS [None]
